FAERS Safety Report 4383626-3 (Version None)
Quarter: 2004Q2

REPORT INFORMATION
  Report Type: 
  Country: None (occurrence: None)
  Receive Date: 20040623
  Receipt Date: 20040615
  Transmission Date: 20050107
  Serious: Yes (Other)
  Sender: FDA-Public Use
  Company Number: PHBS2004JP07960

PATIENT
  Age: 73 Year
  Sex: Female

DRUGS (1)
  1. LAMISIL [Suspect]
     Route: 048

REACTIONS (3)
  - COLITIS ULCERATIVE [None]
  - CONCOMITANT DISEASE AGGRAVATED [None]
  - GASTROINTESTINAL HAEMORRHAGE [None]
